FAERS Safety Report 18553507 (Version 2)
Quarter: 2021Q1

REPORT INFORMATION
  Report Type: Spontaneous
  Country: ES (occurrence: ES)
  Receive Date: 20201127
  Receipt Date: 20210216
  Transmission Date: 20210419
  Serious: Yes (Other)
  Sender: FDA-Public Use
  Company Number: ES-009507513-2010ESP011860

PATIENT
  Age: 17 Year
  Sex: Female

DRUGS (4)
  1. NUVARING [Suspect]
     Active Substance: ETHINYL ESTRADIOL\ETONOGESTREL
     Indication: MENSTRUAL CYCLE MANAGEMENT
  2. NUVARING [Suspect]
     Active Substance: ETHINYL ESTRADIOL\ETONOGESTREL
     Indication: CONTRACEPTION
     Dosage: 1 RING EVERY 4 WEEK (28 DAYS)
     Route: 067
     Dates: end: 20201026
  3. NUVARING [Suspect]
     Active Substance: ETHINYL ESTRADIOL\ETONOGESTREL
     Indication: CONTRACEPTION
     Dosage: 1 RING, EVERY 4 WEEKS
     Route: 067
     Dates: start: 202102, end: 20210209
  4. NUVARING [Suspect]
     Active Substance: ETHINYL ESTRADIOL\ETONOGESTREL
     Indication: MENSTRUAL CYCLE MANAGEMENT

REACTIONS (15)
  - Urinary tract infection bacterial [Unknown]
  - Vulvovaginal candidiasis [Unknown]
  - Device breakage [Unknown]
  - Device expulsion [Unknown]
  - Hypersensitivity [Unknown]
  - Device breakage [Unknown]
  - Device expulsion [Unknown]
  - Medical device site discomfort [Unknown]
  - Incorrect product administration duration [Unknown]
  - Pruritus [Unknown]
  - Product use issue [Unknown]
  - Product use in unapproved indication [Unknown]
  - Medical device site discomfort [Unknown]
  - Urinary tract infection [Recovered/Resolved]
  - Medical device site haemorrhage [Unknown]

NARRATIVE: CASE EVENT DATE: 202010
